FAERS Safety Report 6144799-5 (Version None)
Quarter: 2009Q2

REPORT INFORMATION
  Report Type: 
  Country: None (occurrence: None)
  Receive Date: 20090401
  Receipt Date: 20090401
  Transmission Date: 20091009
  Serious: Yes (Hospitalization)
  Sender: FDA-Public Use
  Company Number: None

PATIENT
  Sex: Male
  Weight: 86 kg

DRUGS (1)
  1. CISPLATIN [Suspect]
     Dosage: 416 MG
     Dates: end: 20081222

REACTIONS (6)
  - FEEDING TUBE COMPLICATION [None]
  - HYPONATRAEMIA [None]
  - INFUSION SITE CELLULITIS [None]
  - MUCOSAL INFLAMMATION [None]
  - PYREXIA [None]
  - SKIN ULCER [None]
